FAERS Safety Report 11659423 (Version 4)
Quarter: 2016Q2

REPORT INFORMATION
  Report Type: Report from Study
  Country: US (occurrence: US)
  Receive Date: 20151026
  Receipt Date: 20160428
  Transmission Date: 20160815
  Serious: Yes (Other)
  Sender: FDA-Public Use
  Company Number: US-AMGEN-USASL2015111464

PATIENT
  Age: 57 Year
  Sex: Female

DRUGS (16)
  1. BOTOX [Concomitant]
     Active Substance: ONABOTULINUMTOXINA
     Dosage: UNK
  2. TIZANIDINE. [Concomitant]
     Active Substance: TIZANIDINE
     Dosage: UNK
  3. CITALOPRAM [Concomitant]
     Active Substance: CITALOPRAM HYDROBROMIDE
     Dosage: 20 MG, QD
  4. BUPRENORPHINE. [Concomitant]
     Active Substance: BUPRENORPHINE
     Dosage: 2MG QAM AND 1/2 IN THE AFTERNOON AND 2 IN QPM
  5. TOPAMAX [Concomitant]
     Active Substance: TOPIRAMATE
     Dosage: 100 MG, BID
  6. METHOTREXATE [Concomitant]
     Active Substance: METHOTREXATE
     Dosage: UNK
  7. XELJANZ [Suspect]
     Active Substance: TOFACITINIB CITRATE
     Indication: PRODUCT USED FOR UNKNOWN INDICATION
     Dosage: UNK
     Route: 065
  8. CIMZIA [Suspect]
     Active Substance: CERTOLIZUMAB PEGOL
     Indication: PRODUCT USED FOR UNKNOWN INDICATION
     Dosage: UNK
     Route: 065
  9. EXCEDRIN [Concomitant]
     Active Substance: ACETAMINOPHEN\ASPIRIN\CAFFEINE
     Indication: MIGRAINE
     Dosage: UNK
  10. REMICADE [Concomitant]
     Active Substance: INFLIXIMAB
     Dosage: UNK
  11. TRAZODONE [Concomitant]
     Active Substance: TRAZODONE HYDROCHLORIDE
     Indication: SLEEP DISORDER
     Dosage: 50MG UP TO 3 TABLETS AT QHS FOR SLEEP
  12. PREDNISONE. [Concomitant]
     Active Substance: PREDNISONE
     Dosage: 5 MG, QD
  13. ENBREL [Suspect]
     Active Substance: ETANERCEPT
     Indication: ANKYLOSING SPONDYLITIS
     Dosage: 50 MG, QWK
     Route: 065
     Dates: start: 2003
  14. ENBREL [Suspect]
     Active Substance: ETANERCEPT
     Indication: PSORIATIC ARTHROPATHY
     Dosage: UNK
     Route: 065
     Dates: start: 20151021
  15. LORAZEPAM. [Concomitant]
     Active Substance: LORAZEPAM
     Dosage: 2 MG, TID
  16. LIMBREL [Concomitant]
     Active Substance: FLAVOCOXID
     Dosage: 500 MG, BID

REACTIONS (13)
  - Hepatic enzyme increased [Unknown]
  - Drug ineffective [Unknown]
  - Spinal fusion surgery [Unknown]
  - Insomnia [Unknown]
  - Back pain [Unknown]
  - Upper respiratory tract infection [Unknown]
  - Cholelithiasis [Unknown]
  - Osteoarthritis [Unknown]
  - Joint dislocation [Unknown]
  - Joint range of motion decreased [Unknown]
  - Malaise [Unknown]
  - Fibromyalgia [Unknown]
  - Nasopharyngitis [Unknown]
